FAERS Safety Report 19146335 (Version 2)
Quarter: 2021Q2

REPORT INFORMATION
  Report Type: Spontaneous
  Country: US (occurrence: US)
  Receive Date: 20210416
  Receipt Date: 20210511
  Transmission Date: 20210717
  Serious: No
  Sender: FDA-Public Use
  Company Number: US-PFIZER INC-2020131358

PATIENT
  Age: 56 Year
  Sex: Female

DRUGS (1)
  1. DEPO?ESTRADIOL [Suspect]
     Active Substance: ESTRADIOL CYPIONATE
     Indication: MENOPAUSE
     Dosage: UNK

REACTIONS (3)
  - Alopecia [Unknown]
  - Thinking abnormal [Unknown]
  - Eye disorder [Unknown]

NARRATIVE: CASE EVENT DATE: 20210412
